FAERS Safety Report 8196962-X (Version None)
Quarter: 2012Q1

REPORT INFORMATION
  Report Type: 
  Country: None (occurrence: None)
  Receive Date: 20120309
  Receipt Date: 20120301
  Transmission Date: 20120608
  Serious: Yes (Other)
  Sender: FDA-Public Use
  Company Number: US-SANOFI-AVENTIS-2012SA009276

PATIENT
  Age: 82 Year
  Sex: Male
  Weight: 90.7 kg

DRUGS (7)
  1. ALLEGRA [Suspect]
     Route: 048
     Dates: end: 20120201
  2. ATENOLOL [Concomitant]
  3. VITAMIN D [Concomitant]
  4. PLAVIX [Concomitant]
  5. FISH OIL [Concomitant]
  6. ALLEGRA [Suspect]
     Route: 048
  7. ATORVASTATIN [Concomitant]

REACTIONS (1)
  - CHOKING [None]
